FAERS Safety Report 14071911 (Version 2)
Quarter: 2018Q2

REPORT INFORMATION
  Report Type: Report from Study
  Country: US (occurrence: US)
  Receive Date: 20171010
  Receipt Date: 20180604
  Transmission Date: 20180711
  Serious: Yes (Other)
  Sender: FDA-Public Use
  Company Number: US-SA-2017SA141732

PATIENT
  Age: 65 Year
  Sex: Male

DRUGS (2)
  1. DUPILUMAB [Suspect]
     Active Substance: DUPILUMAB
     Dosage: 300 MG,QOW
     Route: 058
     Dates: start: 2017
  2. DUPILUMAB [Suspect]
     Active Substance: DUPILUMAB
     Indication: DERMATITIS ATOPIC
     Dosage: 600 MG,QOW
     Route: 058
     Dates: start: 20170526, end: 20170526

REACTIONS (9)
  - Back injury [Unknown]
  - Pain of skin [Recovering/Resolving]
  - Epistaxis [Unknown]
  - Adverse event [Unknown]
  - Neck pain [Recovering/Resolving]
  - Muscle spasms [Unknown]
  - Atrial fibrillation [Unknown]
  - Product use issue [Unknown]
  - Deep vein thrombosis [Unknown]

NARRATIVE: CASE EVENT DATE: 2017
